FAERS Safety Report 4690764-4 (Version None)
Quarter: 2005Q2

REPORT INFORMATION
  Report Type: 
  Country: None (occurrence: None)
  Receive Date: 20050613
  Receipt Date: 20050602
  Transmission Date: 20051028
  Serious: Yes (Other)
  Sender: FDA-Public Use
  Company Number: 2005083033

PATIENT
  Sex: Male

DRUGS (4)
  1. CELONTIN [Suspect]
     Indication: CONVULSION
     Dosage: 300 MG (300 MG, 1 IN 1 D), ORAL
     Route: 048
     Dates: start: 20050501
  2. DILANTIN [Suspect]
     Indication: ILL-DEFINED DISORDER
  3. PHENOBARBITAL TAB [Concomitant]
  4. KLONOPIN [Concomitant]

REACTIONS (7)
  - ABASIA [None]
  - AURICULAR SWELLING [None]
  - COORDINATION ABNORMAL [None]
  - ERYTHEMA [None]
  - EYE SWELLING [None]
  - FATIGUE [None]
  - LETHARGY [None]
